FAERS Safety Report 9892180 (Version 2)
Quarter: 2014Q2

REPORT INFORMATION
  Report Type: Spontaneous
  Country: US (occurrence: US)
  Receive Date: 20140212
  Receipt Date: 20140424
  Transmission Date: 20141212
  Serious: Yes (Hospitalization)
  Sender: FDA-Public Use
  Company Number: US-FRI-1000054136

PATIENT
  Age: 48 Year
  Sex: Female

DRUGS (25)
  1. SAPHRIS [Suspect]
     Indication: POST-TRAUMATIC STRESS DISORDER
     Dosage: 20 MG, HS, RAPID DISSOLVE 10
     Route: 060
     Dates: start: 2011
  2. RESTASIS [Concomitant]
  3. NYSTATIN [Concomitant]
  4. CYMBALTA [Concomitant]
  5. PRILOSEC [Concomitant]
  6. BUSPIRONE [Concomitant]
  7. POTASSIUM [Concomitant]
  8. METFORMIN [Concomitant]
  9. PREMARIN [Concomitant]
  10. DICYCLOMINE HYDROCHLORIDE [Concomitant]
  11. XYZAL [Concomitant]
  12. PRINIVIL [Concomitant]
  13. ZOLOFT [Concomitant]
  14. SINGULAIR [Concomitant]
  15. LYRICA [Concomitant]
  16. MECLIZINE [Concomitant]
  17. FUROSEMIDE [Concomitant]
  18. PROVIGIL [Concomitant]
  19. GLIPIZIDE [Concomitant]
  20. ADVAIR [Concomitant]
  21. VITAMIN D [Concomitant]
  22. STRATTERA [Concomitant]
  23. VISTARIL [Concomitant]
  24. PRAVASTATIN [Concomitant]
  25. NEURONTIN [Concomitant]

REACTIONS (7)
  - Oesophageal rupture [Recovered/Resolved]
  - Surgery [Recovered/Resolved]
  - Drug administration error [Recovered/Resolved]
  - Product blister packaging issue [Unknown]
  - Aphagia [Recovered/Resolved]
  - Inappropriate schedule of drug administration [Unknown]
  - Gastrointestinal tube insertion [Recovered/Resolved]
